FAERS Safety Report 21057890 (Version 1)
Quarter: 2022Q3

REPORT INFORMATION
  Report Type: Spontaneous
  Country: US (occurrence: US)
  Receive Date: 20220708
  Receipt Date: 20220708
  Transmission Date: 20221027
  Serious: No
  Sender: FDA-Public Use
  Company Number: US-PFIZER INC-PV202200017481

PATIENT
  Age: 42 Year
  Sex: Female
  Weight: 127 kg

DRUGS (4)
  1. XELJANZ XR [Suspect]
     Active Substance: TOFACITINIB CITRATE
     Dosage: UNK
  2. HUMIRA [Suspect]
     Active Substance: ADALIMUMAB
     Dosage: UNK
     Route: 058
  3. COSENTYX [Concomitant]
     Active Substance: SECUKINUMAB
     Dosage: UNK
  4. TREMFYA [Concomitant]
     Active Substance: GUSELKUMAB
     Dosage: UNK

REACTIONS (3)
  - Gallbladder disorder [Unknown]
  - Nasopharyngitis [Unknown]
  - Diarrhoea [Unknown]
